FAERS Safety Report 22892528 (Version 2)
Quarter: 2024Q1

REPORT INFORMATION
  Report Type: Spontaneous
  Country: FR (occurrence: FR)
  Receive Date: 20230901
  Receipt Date: 20240102
  Transmission Date: 20240410
  Serious: Yes (Death)
  Sender: FDA-Public Use
  Company Number: FR-PFIZER INC-PV202300137691

PATIENT
  Age: 54 Year
  Sex: Male
  Weight: 76 kg

DRUGS (2)
  1. CLOFARABINE [Suspect]
     Active Substance: CLOFARABINE
     Indication: Product used for unknown indication
     Dosage: UNK
     Route: 065
  2. MYLOTARG [Suspect]
     Active Substance: GEMTUZUMAB OZOGAMICIN
     Indication: Product used for unknown indication
     Dosage: 3 MG/M2, 1X/DAY (D1, D4)
     Route: 065
     Dates: start: 20211109

REACTIONS (2)
  - Death [Fatal]
  - Liver function test abnormal [Unknown]

NARRATIVE: CASE EVENT DATE: 20211118
